FAERS Safety Report 24354349 (Version 1)
Quarter: 2024Q3

REPORT INFORMATION
  Report Type: Report from Study
  Country: EG (occurrence: EG)
  Receive Date: 20240923
  Receipt Date: 20240923
  Transmission Date: 20241017
  Serious: Yes (Other)
  Sender: NOVARTIS
  Company Number: EG-002147023-NVSC2022EG034147

PATIENT
  Age: 70 Year
  Sex: Female
  Weight: 85 kg

DRUGS (7)
  1. KISQALI [Suspect]
     Active Substance: RIBOCICLIB
     Indication: Breast cancer
     Dosage: 200 MG, QD(3 TABLETS PER DAY FOR 3 WEEKS THEN 1 WEEK OFF)
     Route: 048
     Dates: start: 20210828
  2. KISQALI [Suspect]
     Active Substance: RIBOCICLIB
     Indication: Breast cancer metastatic
     Dosage: 600 MG, QD, 3 TABLETS ONCE DAILY FOR 21 DAYS AND 1 WEEK OFF
     Route: 048
     Dates: end: 20240801
  3. FEMARA [Concomitant]
     Active Substance: LETROZOLE
     Indication: Hormone therapy
     Dosage: 1 DOSAGE FORM, QD (1 TABLET PER DAY)
     Route: 065
     Dates: start: 202108
  4. XGEVA [Concomitant]
     Active Substance: DENOSUMAB
     Indication: Blood calcium
     Dosage: 1 DOSAGE FORM, QMO (1 INJECTION PER MONTH)
     Route: 065
     Dates: start: 202108
  5. LINAGLIPTIN [Concomitant]
     Active Substance: LINAGLIPTIN
     Indication: Diabetes mellitus
     Dosage: UNK, QD(1 TABLET PER DAY)(FROM 10 YEARS)
     Route: 048
     Dates: start: 20040101
  6. TRITACE COMP LS [Concomitant]
     Indication: Hypertension
     Dosage: 1 DOSAGE FORM, QD
     Route: 048
     Dates: start: 20040101
  7. NEBIVOLOL HYDROCHLORIDE [Concomitant]
     Active Substance: NEBIVOLOL HYDROCHLORIDE
     Indication: Hypertension
     Dosage: 1 DOSAGE FORM, QD (FROM 20 YEARS)
     Route: 048
     Dates: start: 20040101

REACTIONS (11)
  - Alopecia [Not Recovered/Not Resolved]
  - Nervousness [Not Recovered/Not Resolved]
  - Mental disorder [Not Recovered/Not Resolved]
  - Crying [Not Recovered/Not Resolved]
  - Onychoclasis [Not Recovered/Not Resolved]
  - Nail ridging [Not Recovered/Not Resolved]
  - Skin burning sensation [Not Recovered/Not Resolved]
  - Decreased appetite [Not Recovered/Not Resolved]
  - Pigmentation disorder [Recovered/Resolved]
  - Dry skin [Recovered/Resolved]
  - Flatulence [Recovered/Resolved]

NARRATIVE: CASE EVENT DATE: 20210801
